FAERS Safety Report 18691164 (Version 2)
Quarter: 2021Q1

REPORT INFORMATION
  Report Type: Other
  Country: BE (occurrence: BE)
  Receive Date: 20210101
  Receipt Date: 20210118
  Transmission Date: 20210419
  Serious: Yes (Death, Other)
  Sender: FDA-Public Use
  Company Number: BE-ROCHE-2742593

PATIENT
  Age: 81 Year
  Sex: Female

DRUGS (2)
  1. AVASTIN [Suspect]
     Active Substance: BEVACIZUMAB
     Indication: HEPATOCELLULAR CARCINOMA
     Route: 065
  2. TECENTRIQ [Suspect]
     Active Substance: ATEZOLIZUMAB
     Indication: HEPATOCELLULAR CARCINOMA
     Dosage: 840MG/14ML?DAY 1 OF EACH 21 DAY CYCLE
     Route: 041

REACTIONS (4)
  - Tumour necrosis [Recovered/Resolved with Sequelae]
  - Condition aggravated [Fatal]
  - Escherichia sepsis [Recovered/Resolved with Sequelae]
  - Escherichia bacteraemia [Unknown]

NARRATIVE: CASE EVENT DATE: 202007
